FAERS Safety Report 25555785 (Version 1)
Quarter: 2025Q3

REPORT INFORMATION
  Report Type: Spontaneous
  Country: US (occurrence: US)
  Receive Date: 20250715
  Receipt Date: 20250715
  Transmission Date: 20251020
  Serious: No
  Sender: NOVO NORDISK
  Company Number: US-NOVOPROD-1250400

PATIENT
  Age: 76 Year
  Sex: Male

DRUGS (3)
  1. OZEMPIC [Suspect]
     Active Substance: SEMAGLUTIDE
     Indication: Type 2 diabetes mellitus
     Dosage: 0.25 MG, QW
     Route: 058
     Dates: start: 20240615
  2. OZEMPIC [Suspect]
     Active Substance: SEMAGLUTIDE
     Indication: Weight control
     Dosage: 0.25 MG, QW
     Route: 058
     Dates: start: 20240622
  3. METFORMIN [Concomitant]
     Active Substance: METFORMIN HYDROCHLORIDE
     Indication: Product used for unknown indication

REACTIONS (9)
  - Vision blurred [Recovered/Resolved]
  - Glycosylated haemoglobin increased [Unknown]
  - Nausea [Recovered/Resolved]
  - Abdominal pain upper [Recovered/Resolved]
  - Wrong technique in product usage process [Unknown]
  - Incorrect dose administered by device [Not Recovered/Not Resolved]
  - Device issue [Unknown]
  - Wrong technique in product usage process [Not Recovered/Not Resolved]
  - Device use confusion [Unknown]

NARRATIVE: CASE EVENT DATE: 20240615
